FAERS Safety Report 7939384-6 (Version None)
Quarter: 2011Q4

REPORT INFORMATION
  Report Type: 
  Country: None (occurrence: None)
  Receive Date: 20111125
  Receipt Date: 20111115
  Transmission Date: 20120403
  Serious: Yes (Hospitalization)
  Sender: FDA-Public Use
  Company Number: JP-ROCHE-1012972

PATIENT
  Age: 3 Decade
  Sex: Female

DRUGS (22)
  1. ROHYPNOL [Suspect]
     Dosage: DOSAGE IS UNCERTAIN.
     Route: 048
  2. ZOLPIDEM [Suspect]
     Dosage: DOSAGE IS UNCERTAIN.
     Route: 048
  3. CARBAMAZEPINE [Suspect]
     Indication: ALCOHOLISM
     Route: 048
  4. CLOMIPRAMINE HCL [Suspect]
     Indication: ALCOHOLISM
     Route: 048
  5. MIANSERIN HYDROCHLORIDE [Suspect]
     Dosage: DOSAGE IS UNCERTAIN.
     Route: 048
  6. LEXOTAN [Suspect]
     Indication: ALCOHOLISM
     Route: 048
  7. DIAZEPAM [Suspect]
     Indication: ALCOHOLISM
     Route: 048
  8. DIAZEPAM [Suspect]
     Dosage: DOSAGE IS UNCERTAIN.
     Route: 048
  9. TRIAZOLAM [Suspect]
     Indication: ALCOHOLISM
     Route: 048
  10. CARBAMAZEPINE [Suspect]
     Dosage: DOSAGE IS UNCERTAIN.
     Route: 048
  11. ROHYPNOL [Suspect]
     Indication: ALCOHOLISM
     Route: 048
  12. RISPERIDONE [Suspect]
     Indication: ALCOHOLISM
     Route: 048
  13. MIANSERIN HYDROCHLORIDE [Suspect]
     Indication: ALCOHOLISM
     Route: 048
  14. VALPROATE SODIUM [Suspect]
     Indication: ALCOHOLISM
     Route: 048
  15. RISPERIDONE [Suspect]
     Dosage: DOSAGE IS UNCERTAIN.
     Route: 048
  16. CLOMIPRAMINE HCL [Suspect]
     Dosage: DOSAGE IS UNCERTAIN.
     Route: 048
  17. QUAZEPAM [Suspect]
     Indication: ALCOHOLISM
     Route: 048
  18. QUAZEPAM [Suspect]
     Dosage: DOSAGE IS UNCERTAIN.
     Route: 048
  19. LEXOTAN [Suspect]
     Dosage: DOSAGE IS UNCERTAIN.
     Route: 048
  20. TRIAZOLAM [Suspect]
     Dosage: DOSAGE IS UNCERTAIN.
     Route: 048
  21. ZOLPIDEM [Suspect]
     Indication: ALCOHOLISM
     Route: 048
  22. VALPROATE SODIUM [Suspect]
     Dosage: DOSAGE IS UNCERTAIN.
     Route: 048

REACTIONS (3)
  - SUICIDE ATTEMPT [None]
  - OVERDOSE [None]
  - ALTERED STATE OF CONSCIOUSNESS [None]
